FAERS Safety Report 6603901-9 (Version None)
Quarter: 2010Q1

REPORT INFORMATION
  Report Type: 
  Country: None (occurrence: None)
  Receive Date: 20100226
  Receipt Date: 20090311
  Transmission Date: 20100710
  Serious: No
  Sender: FDA-Public Use
  Company Number: A0772786A

PATIENT
  Sex: Male

DRUGS (2)
  1. LAMICTAL CD [Suspect]
     Indication: EPILEPSY
     Route: 048
     Dates: start: 19990101, end: 20090101
  2. LAMOTRIGINE [Suspect]
     Indication: EPILEPSY
     Route: 048
     Dates: start: 20090101

REACTIONS (1)
  - DRUG INEFFECTIVE [None]
